FAERS Safety Report 4801528-2 (Version None)
Quarter: 2005Q4

REPORT INFORMATION
  Report Type: 
  Country: None (occurrence: None)
  Receive Date: 20051011
  Receipt Date: 20050928
  Transmission Date: 20060501
  Serious: Yes (Other)
  Sender: FDA-Public Use
  Company Number: 2005134832

PATIENT
  Age: 57 Year
  Sex: Male
  Weight: 122.9248 kg

DRUGS (1)
  1. CELEBREX [Suspect]
     Indication: ARTHRITIS

REACTIONS (3)
  - CORONARY ARTERY SURGERY [None]
  - DRUG INEFFECTIVE [None]
  - NECK PAIN [None]
